FAERS Safety Report 12006942 (Version 4)
Quarter: 2016Q4

REPORT INFORMATION
  Report Type: Spontaneous
  Country: JP (occurrence: JP)
  Receive Date: 20160204
  Receipt Date: 20161026
  Transmission Date: 20170206
  Serious: Yes (Other)
  Sender: FDA-Public Use
  Company Number: JP-PFIZER INC-2016052842

PATIENT
  Age: 82 Year
  Sex: Male

DRUGS (2)
  1. TORISEL [Suspect]
     Active Substance: TEMSIROLIMUS
     Dosage: 20 MG, DAILY
     Route: 041
     Dates: start: 20151202
  2. TORISEL [Suspect]
     Active Substance: TEMSIROLIMUS
     Dosage: UNK, 1-WEEK-ON AND 1-WEEK-OFF SCHEDULE
     Route: 041

REACTIONS (4)
  - Renal impairment [Not Recovered/Not Resolved]
  - Blood creatinine increased [Not Recovered/Not Resolved]
  - Neoplasm progression [Not Recovered/Not Resolved]
  - Cardiac failure [Recovered/Resolved]

NARRATIVE: CASE EVENT DATE: 20161020
